FAERS Safety Report 9691152 (Version 1)
Quarter: 2013Q4

REPORT INFORMATION
  Report Type: Spontaneous
  Country: IT (occurrence: IT)
  Receive Date: 20131115
  Receipt Date: 20131115
  Transmission Date: 20140711
  Serious: Yes (Hospitalization)
  Sender: FDA-Public Use
  Company Number: IT-GLAXOSMITHKLINE-B0944125A

PATIENT
  Age: 42 Year
  Sex: Female

DRUGS (2)
  1. WELLBUTRIN [Suspect]
     Indication: INTENTIONAL SELF-INJURY
     Route: 065
     Dates: start: 20130106
  2. ALPRAZOLAM [Suspect]
     Indication: INTENTIONAL SELF-INJURY
     Route: 065
     Dates: start: 20130106

REACTIONS (1)
  - Drug abuse [Recovered/Resolved]
